FAERS Safety Report 10774804 (Version 1)
Quarter: 2015Q1

REPORT INFORMATION
  Report Type: Other
  Country: US (occurrence: US)
  Receive Date: 20150209
  Receipt Date: 20150209
  Transmission Date: 20150721
  Serious: Yes (Disabling)
  Sender: FDA-Public Use
  Company Number: US-ACORDA-ACO_108442_2015

PATIENT
  Sex: Male
  Weight: 102.4 kg

DRUGS (2)
  1. AMPYRA [Suspect]
     Active Substance: DALFAMPRIDINE
     Indication: MULTIPLE SCLEROSIS
     Dosage: 10 MG Q 12 HRS
     Route: 048
     Dates: start: 201404, end: 20150114
  2. AMPYRA [Suspect]
     Active Substance: DALFAMPRIDINE
     Indication: GAIT DISTURBANCE

REACTIONS (8)
  - Fall [Unknown]
  - Dysstasia [Unknown]
  - Abasia [Not Recovered/Not Resolved]
  - Condition aggravated [Unknown]
  - Therapy cessation [Unknown]
  - Depression [Not Recovered/Not Resolved]
  - Activities of daily living impaired [Unknown]
  - Anger [Not Recovered/Not Resolved]
